FAERS Safety Report 25824120 (Version 1)
Quarter: 2025Q3

REPORT INFORMATION
  Report Type: Report from Study
  Country: EU (occurrence: EU)
  Receive Date: 20250919
  Receipt Date: 20250919
  Transmission Date: 20251020
  Serious: Yes (Death)
  Sender: ROCHE
  Company Number: EU-CHEPLA-2024013888

PATIENT
  Age: 54 Year

DRUGS (5)
  1. MYCOPHENOLATE MOFETIL [Suspect]
     Active Substance: MYCOPHENOLATE MOFETIL
     Indication: Prophylaxis against graft versus host disease
     Route: 065
  2. GANCICLOVIR [Suspect]
     Active Substance: GANCICLOVIR
     Indication: Cytomegalovirus viraemia
     Route: 065
  3. GANCICLOVIR [Suspect]
     Active Substance: GANCICLOVIR
     Indication: Cytomegalovirus colitis
  4. FLUDARABINE [Suspect]
     Active Substance: FLUDARABINE PHOSPHATE
     Indication: Mantle cell lymphoma
     Route: 065
  5. CYCLOSPORINE [Suspect]
     Active Substance: CYCLOSPORINE
     Indication: Prophylaxis against graft versus host disease
     Route: 065

REACTIONS (5)
  - Pneumonia [Fatal]
  - Cytomegalovirus colitis [Fatal]
  - Cytomegalovirus viraemia [Unknown]
  - Graft versus host disease [Fatal]
  - Drug ineffective [Fatal]
